FAERS Safety Report 8576063-9 (Version None)
Quarter: 2012Q3

REPORT INFORMATION
  Report Type: 
  Country: None (occurrence: None)
  Receive Date: 20120725
  Receipt Date: 20120710
  Transmission Date: 20120928
  Serious: Yes (Other)
  Sender: FDA-Public Use
  Company Number: TPA2012A04508

PATIENT
  Sex: Male

DRUGS (1)
  1. EDARBI [Suspect]
     Indication: HYPERTENSION
     Dosage: 80 MG, PER ORAL
     Route: 048
     Dates: start: 20120707, end: 20120701

REACTIONS (1)
  - ANGIOEDEMA [None]
